FAERS Safety Report 9118641 (Version 1)
Quarter: 2013Q1

REPORT INFORMATION
  Report Type: Report from Study
  Country: IT (occurrence: IT)
  Receive Date: 20130226
  Receipt Date: 20130226
  Transmission Date: 20140127
  Serious: Yes (Hospitalization)
  Sender: FDA-Public Use
  Company Number: IT-INCYTE CORPORATION-2013IN000344

PATIENT
  Sex: 0

DRUGS (1)
  1. INC424 [Suspect]
     Dosage: 20 MG, BID
     Route: 048
     Dates: start: 20111222

REACTIONS (1)
  - Mallory-Weiss syndrome [Recovered/Resolved]
